FAERS Safety Report 8306629-2 (Version None)
Quarter: 2012Q2

REPORT INFORMATION
  Report Type: 
  Country: None (occurrence: None)
  Receive Date: 20120420
  Receipt Date: 20120418
  Transmission Date: 20120825
  Serious: Yes (Death)
  Sender: FDA-Public Use
  Company Number: ADR-2011-11009

PATIENT
  Age: 65 Year
  Sex: Male

DRUGS (4)
  1. LIORESAL [Suspect]
     Indication: MUSCLE SPASTICITY
     Dosage: 299.71 MCG, DAILY, INTR
  2. DILAUDID [Concomitant]
  3. BUPIVACAINE HCL [Concomitant]
  4. DROPERIDOL [Concomitant]

REACTIONS (1)
  - PROSTATE CANCER METASTATIC [None]
